FAERS Safety Report 7032909-7 (Version None)
Quarter: 2010Q4

REPORT INFORMATION
  Report Type: 
  Country: None (occurrence: None)
  Receive Date: 20101007
  Receipt Date: 20100930
  Transmission Date: 20110411
  Serious: Yes (Hospitalization, Other)
  Sender: FDA-Public Use
  Company Number: US-JNJFOC-20101000443

PATIENT
  Sex: Female
  Weight: 117.94 kg

DRUGS (3)
  1. DURAGESIC-100 [Suspect]
     Indication: LIVER DISORDER
     Route: 062
  2. DURAGESIC-100 [Suspect]
     Route: 062
  3. NEXIUM [Concomitant]
     Indication: GASTROOESOPHAGEAL REFLUX DISEASE
     Dosage: 80 MG/CAPSULE/40 MG DAILY/ORAL
     Route: 048

REACTIONS (3)
  - HOSPITALISATION [None]
  - PRODUCT ADHESION ISSUE [None]
  - WEIGHT DECREASED [None]
